FAERS Safety Report 11787878 (Version 1)
Quarter: 2015Q4

REPORT INFORMATION
  Report Type: Spontaneous
  Country: US (occurrence: US)
  Receive Date: 20151130
  Receipt Date: 20151130
  Transmission Date: 20160305
  Serious: No
  Sender: FDA-Public Use
  Company Number: PHHY2014US155360

PATIENT
  Age: 28 Year
  Sex: Female

DRUGS (1)
  1. DIPHENHYDRAMINE. [Suspect]
     Active Substance: DIPHENHYDRAMINE
     Indication: URTICARIA
     Dosage: 100 MG, UNK
     Route: 048

REACTIONS (1)
  - Drug ineffective [Unknown]
